FAERS Safety Report 22377725 (Version 2)
Quarter: 2023Q2

REPORT INFORMATION
  Report Type: Spontaneous
  Country: US (occurrence: US)
  Receive Date: 20230529
  Receipt Date: 20230623
  Transmission Date: 20230722
  Serious: No
  Sender: FDA-Public Use
  Company Number: US-SA-SAC20230526000155

PATIENT
  Sex: Female

DRUGS (1)
  1. DUPIXENT [Suspect]
     Active Substance: DUPILUMAB
     Dosage: 300 MG, QOW
     Route: 058
     Dates: start: 20230525

REACTIONS (5)
  - Discomfort [Unknown]
  - Condition aggravated [Unknown]
  - Impaired quality of life [Unknown]
  - Sleep disorder [Unknown]
  - Rash [Unknown]
